FAERS Safety Report 16355492 (Version 1)
Quarter: 2019Q2

REPORT INFORMATION
  Report Type: Spontaneous
  Country: CA (occurrence: CA)
  Receive Date: 20190525
  Receipt Date: 20190525
  Transmission Date: 20190711
  Serious: Yes (Other)
  Sender: FDA-Public Use
  Company Number: CA-009507513-1905CAN010797

PATIENT
  Age: 18 Year
  Sex: Female
  Weight: 43.08 kg

DRUGS (4)
  1. CYKLOKAPRON [Concomitant]
     Active Substance: TRANEXAMIC ACID
     Dosage: DOSAGE FORM NOT SPECIFIED
  2. SINGULAIR [Suspect]
     Active Substance: MONTELUKAST SODIUM
     Dosage: 10 MILLIGRAM, 1 EVERY 1 DAY
     Route: 048
  3. VYVANSE [Concomitant]
     Active Substance: LISDEXAMFETAMINE DIMESYLATE
  4. HORMONAL CONTRACEPTIVES (UNSPECIFIED) [Concomitant]
     Active Substance: UNSPECIFIED INGREDIENT

REACTIONS (4)
  - Blood disorder [Recovered/Resolved]
  - Asthma [Recovered/Resolved]
  - Feeling abnormal [Recovered/Resolved]
  - Attention deficit/hyperactivity disorder [Recovered/Resolved]
